FAERS Safety Report 8097250-2 (Version None)
Quarter: 2012Q1

REPORT INFORMATION
  Report Type: 
  Country: None (occurrence: None)
  Receive Date: 20120128
  Receipt Date: 20110706
  Transmission Date: 20120608
  Serious: No
  Sender: FDA-Public Use
  Company Number: US-ABBOTT-11P-163-0730763-00

PATIENT
  Age: 24 Year
  Sex: Female

DRUGS (6)
  1. HUMIRA [Suspect]
     Indication: PSORIASIS
     Dates: start: 20101001
  2. DERMA-SMOOTHE/FS [Concomitant]
     Indication: SKIN DISORDER
     Dosage: DAILY
  3. CLOBETASOL [Concomitant]
     Indication: SKIN DISORDER
     Dosage: DAILY
  4. FLUOCINONIDE [Concomitant]
     Indication: SKIN DISORDER
     Dosage: 0.05%, DAILY
  5. ALESSE [Concomitant]
     Indication: CONTRACEPTION
     Dosage: DAILY
  6. ZOLOFT [Concomitant]
     Indication: PRODUCT USED FOR UNKNOWN INDICATION
     Dosage: DAILY

REACTIONS (1)
  - INJECTION SITE DISCOLOURATION [None]
